FAERS Safety Report 8207523-8 (Version None)
Quarter: 2012Q1

REPORT INFORMATION
  Report Type: 
  Country: None (occurrence: None)
  Receive Date: 20120314
  Receipt Date: 20120304
  Transmission Date: 20120608
  Serious: Yes (Other)
  Sender: FDA-Public Use
  Company Number: FI-BRISTOL-MYERS SQUIBB COMPANY-16407223

PATIENT

DRUGS (1)
  1. ABILIFY [Suspect]

REACTIONS (3)
  - OFF LABEL USE [None]
  - WEIGHT INCREASED [None]
  - ELECTROENCEPHALOGRAM ABNORMAL [None]
